FAERS Safety Report 16463548 (Version 1)
Quarter: 2019Q2

REPORT INFORMATION
  Report Type: Spontaneous
  Country: US (occurrence: US)
  Receive Date: 20190513
  Receipt Date: 20190513
  Transmission Date: 20190711
  Serious: No
  Sender: FDA-Public Use
  Company Number: None

PATIENT
  Age: 59 Year
  Sex: Female

DRUGS (1)
  1. TALTZ [Suspect]
     Active Substance: IXEKIZUMAB
     Indication: RHEUMATOID ARTHRITIS
     Route: 058
     Dates: start: 20180626

REACTIONS (4)
  - Faeces soft [None]
  - Abdominal pain upper [None]
  - Product odour abnormal [None]
  - Liquid product physical issue [None]

NARRATIVE: CASE EVENT DATE: 20190507
